FAERS Safety Report 20844099 (Version 1)
Quarter: 2022Q2

REPORT INFORMATION
  Report Type: Spontaneous
  Country: US (occurrence: None)
  Receive Date: 20220517
  Receipt Date: 20220517
  Transmission Date: 20220721
  Serious: No
  Sender: FDA-Public Use
  Company Number: None

PATIENT
  Age: 67 Year
  Sex: Female
  Weight: 70.31 kg

DRUGS (12)
  1. IBRANCE [Suspect]
     Active Substance: PALBOCICLIB
     Indication: Breast cancer female
     Dosage: OTHER FREQUENCY : 3W,1W OFF;?
     Route: 048
  2. BENADRYL ALLERGY [Concomitant]
  3. CALCIUM CARBONATE [Concomitant]
  4. CALCIUM/MAGNEISUM/ZINC [Concomitant]
  5. CHOLECALCIFEROL [Concomitant]
  6. FEMARA [Concomitant]
     Active Substance: LETROZOLE
  7. FLONASE NASAL [Concomitant]
  8. MULTIVITAMIN [Concomitant]
  9. NITROGLYCERIN [Concomitant]
     Active Substance: NITROGLYCERIN
  10. PREDNISONE [Concomitant]
  11. SYNTHROID [Concomitant]
  12. ZESTRIL [Concomitant]

REACTIONS (2)
  - White blood cell count decreased [None]
  - Therapy interrupted [None]
